FAERS Safety Report 5189103-4 (Version None)
Quarter: 2006Q4

REPORT INFORMATION
  Report Type: 
  Country: None (occurrence: None)
  Receive Date: 20061218
  Receipt Date: 20061207
  Transmission Date: 20070319
  Serious: Yes (Hospitalization, Other)
  Sender: FDA-Public Use
  Company Number: 440028K06USA

PATIENT
  Age: 37 Year
  Sex: Male

DRUGS (18)
  1. SEROSTIM [Suspect]
     Indication: CACHEXIA
     Dosage: 6 MG, 1 IN 1 DAYS; NOT REPORTED
     Dates: start: 19910101
  2. NOVIR (RITONAVIR) [Concomitant]
  3. ZIAGEN [Concomitant]
  4. LEXIVA [Concomitant]
  5. ACYCLOVIR [Concomitant]
  6. DIFLUCAN [Concomitant]
  7. TESTOSTERONE [Concomitant]
  8. NANDROLONE DECANOATE [Concomitant]
  9. LISINOPRIL [Concomitant]
  10. CELEBREX [Concomitant]
  11. IBUPROFEN [Concomitant]
  12. NEURONTIN [Concomitant]
  13. MS CONTIN [Concomitant]
  14. PERCOCET [Concomitant]
  15. RITALIN [Concomitant]
  16. TRAZODONE HCL [Concomitant]
  17. VALIUM [Concomitant]
  18. IMITREX [Concomitant]

REACTIONS (7)
  - ARTHRALGIA [None]
  - BACK PAIN [None]
  - GASTRITIS [None]
  - KAPOSI'S SARCOMA [None]
  - MIGRAINE [None]
  - NAUSEA [None]
  - PAIN [None]
